FAERS Safety Report 9861720 (Version 1)
Quarter: 2014Q1

REPORT INFORMATION
  Report Type: Spontaneous
  Country: US (occurrence: None)
  Receive Date: 20140131
  Receipt Date: 20140131
  Transmission Date: 20141002
  Serious: Yes (Other)
  Sender: FDA-Public Use
  Company Number: None

PATIENT
  Age: 45 Year
  Sex: Female
  Weight: 126 kg

DRUGS (6)
  1. CARBOPLATIN [Suspect]
     Indication: BREAST CANCER
     Dosage: 900 MG OVER 30 MINUTES INTRAVENOUS
     Route: 042
  2. TRASTUZUMAB [Concomitant]
  3. DOCETAXEL [Concomitant]
  4. PALONOSETRON [Concomitant]
  5. FOSAPREPITANT [Concomitant]
  6. HEPARIN LOCK FLUSH [Concomitant]

REACTIONS (8)
  - Feeling hot [None]
  - Nausea [None]
  - Abdominal pain [None]
  - Retching [None]
  - Pruritus [None]
  - Back pain [None]
  - Pain [None]
  - Dyspnoea [None]
